FAERS Safety Report 4484899-9 (Version None)
Quarter: 2004Q3

REPORT INFORMATION
  Report Type: 
  Country: None (occurrence: None)
  Receive Date: 20040921
  Receipt Date: 20030904
  Transmission Date: 20050211
  Serious: Yes (Other)
  Sender: FDA-Public Use
  Company Number: 163-20785-03090107

PATIENT

DRUGS (1)
  1. THALOMID [Suspect]
     Indication: MULTIPLE MYELOMA
     Dosage: 150 MG, DAILY, ORAL; } 2 YRS
     Route: 048

REACTIONS (2)
  - ABNORMAL BEHAVIOUR [None]
  - CONVULSION [None]
